FAERS Safety Report 14758972 (Version 1)
Quarter: 2018Q2

REPORT INFORMATION
  Report Type: Spontaneous
  Country: US (occurrence: US)
  Receive Date: 20180413
  Receipt Date: 20180413
  Transmission Date: 20180711
  Serious: No
  Sender: FDA-Public Use
  Company Number: US-ALKERMES INC.-ALK-2018-002133

PATIENT
  Age: 24 Year
  Sex: Male
  Weight: 96.15 kg

DRUGS (1)
  1. ARISTADA [Suspect]
     Active Substance: ARIPIPRAZOLE LAUROXIL
     Indication: AFFECTIVE DISORDER
     Dosage: 1064 MG, Q2MO
     Route: 030
     Dates: start: 20180209

REACTIONS (3)
  - Dyskinesia [Unknown]
  - Mood altered [Unknown]
  - Off label use [Not Recovered/Not Resolved]

NARRATIVE: CASE EVENT DATE: 2018
